FAERS Safety Report 7815757-7 (Version None)
Quarter: 2011Q4

REPORT INFORMATION
  Report Type: 
  Country: None (occurrence: None)
  Receive Date: 20111014
  Receipt Date: 20111005
  Transmission Date: 20120403
  Serious: Yes (Death)
  Sender: FDA-Public Use
  Company Number: US-CELGENEUS-163-21880-11101538

PATIENT
  Age: 52 Year
  Sex: Male

DRUGS (15)
  1. DEXAMETHASONE [Suspect]
     Indication: MULTIPLE MYELOMA
     Dosage: 20 MILLIGRAM
     Route: 048
     Dates: start: 20110609
  2. REVLIMID [Suspect]
     Dosage: 5 MILLIGRAM
     Route: 048
     Dates: start: 20110614
  3. TRAMADOL HCL [Concomitant]
     Route: 065
  4. BORTEZOMIB [Suspect]
     Dosage: 1.3 MILLIGRAM
     Route: 041
     Dates: start: 20110613
  5. OXYGEN [Concomitant]
     Indication: RESPIRATORY DISTRESS
     Route: 065
     Dates: start: 20110601
  6. REVLIMID [Suspect]
     Indication: MULTIPLE MYELOMA
     Dosage: 25 MILLIGRAM
     Route: 048
     Dates: start: 20110609
  7. BORTEZOMIB [Suspect]
     Indication: MULTIPLE MYELOMA
     Dosage: 1.3 MILLIGRAM/SQ. METER
     Route: 041
     Dates: start: 20110609
  8. LEVOPHED [Concomitant]
     Indication: RESPIRATORY DISTRESS
     Route: 065
     Dates: start: 20110601
  9. DEXAMETHASONE [Suspect]
     Dosage: 20 MILLIGRAM
     Route: 048
     Dates: start: 20110617
  10. ASPIRIN [Concomitant]
     Dosage: 325 MILLIGRAM
     Route: 048
  11. WHOLE BLOOD [Concomitant]
     Indication: FULL BLOOD COUNT DECREASED
     Route: 041
     Dates: start: 20110611, end: 20110611
  12. FENTANYL [Concomitant]
     Route: 061
  13. BORTEZOMIB [Suspect]
     Dosage: 1.3 MILLIGRAM/SQ. METER
     Route: 041
     Dates: start: 20110616
  14. AREDIA [Concomitant]
     Route: 065
     Dates: start: 20110526
  15. ALBUTEROL [Concomitant]
     Route: 065

REACTIONS (1)
  - MULTI-ORGAN FAILURE [None]
